FAERS Safety Report 8240078-0 (Version None)
Quarter: 2012Q1

REPORT INFORMATION
  Report Type: 
  Country: None (occurrence: None)
  Receive Date: 20120328
  Receipt Date: 20120316
  Transmission Date: 20120608
  Serious: Yes (Hospitalization, Other)
  Sender: FDA-Public Use
  Company Number: US-SANOFI-AVENTIS-2012SA016311

PATIENT
  Sex: Female

DRUGS (11)
  1. GLIMEPIRIDE [Concomitant]
  2. LASIX [Concomitant]
     Indication: SWELLING
  3. POTASSIUM [Concomitant]
  4. METOPROLOL SUCCINATE [Concomitant]
  5. METFORMIN HCL [Concomitant]
  6. HYDROCHLOROTHIAZIDE [Concomitant]
     Indication: SWELLING
  7. AMLODIPINE [Concomitant]
  8. ANTIHYPERTENSIVES [Concomitant]
  9. MULTAQ [Suspect]
     Indication: ATRIAL FIBRILLATION
     Route: 048
  10. MULTAQ [Suspect]
     Route: 048
  11. LANTUS [Concomitant]
     Dosage: DOSE:23 UNIT(S)

REACTIONS (6)
  - PNEUMONIA [None]
  - CONSTIPATION [None]
  - ATRIAL FIBRILLATION [None]
  - FATIGUE [None]
  - ABDOMINAL PAIN UPPER [None]
  - NAUSEA [None]
